FAERS Safety Report 9570806 (Version 2)
Quarter: 2013Q4

REPORT INFORMATION
  Report Type: Spontaneous
  Country: BR (occurrence: BR)
  Receive Date: 20131001
  Receipt Date: 20131001
  Transmission Date: 20140711
  Serious: Yes (Other)
  Sender: FDA-Public Use
  Company Number: BR-AMGEN-BRASP2013020967

PATIENT
  Age: 50 Year
  Sex: Female
  Weight: 86 kg

DRUGS (12)
  1. LOSARTAN [Concomitant]
     Indication: HYPERTENSION
     Dosage: 100 MG, ONCE DAILY (IN THE MORNING)
  2. DIPYRONE [Concomitant]
     Dosage: UNK, EVERY 6 HOURS, FOUR TIMES PER DAY
  3. ENBREL [Suspect]
     Indication: RHEUMATOID ARTHRITIS
     Dosage: 50 MG, 1X/WEEK
     Route: 065
     Dates: start: 2007
  4. ENBREL [Suspect]
     Dosage: UNK
     Route: 065
     Dates: start: 2010
  5. ENBREL [Suspect]
     Dosage: 50 MG, QWK
     Route: 065
     Dates: start: 2007
  6. ENBREL [Suspect]
     Dosage: 50 MG, QWK
     Route: 065
     Dates: start: 201309
  7. ENBREL [Suspect]
     Dosage: UNK
     Route: 065
     Dates: start: 20130918
  8. FOLIC ACID [Concomitant]
     Indication: ANAEMIA
     Dosage: UNK, QWK
  9. OMEPRAZOLE [Concomitant]
     Indication: GASTRIC DISORDER
     Dosage: 40 MG, CONTINUOUS USE
  10. CORTISONE [Concomitant]
     Indication: ARTHRITIS
     Dosage: 5 MG, ONCE PER DAY (IN THE MORNING)
  11. METHOTREXATE [Concomitant]
     Indication: ARTHRITIS
     Dosage: 6 TABLETS, ONCE WEEKLY
  12. TRAMAL [Concomitant]
     Dosage: UNK

REACTIONS (8)
  - Musculoskeletal disorder [Unknown]
  - Axillary mass [Unknown]
  - Mass [Unknown]
  - Skin papilloma [Unknown]
  - Depression [Not Recovered/Not Resolved]
  - Hypertension [Unknown]
  - Hernia [Unknown]
  - Infection [Unknown]
